FAERS Safety Report 17907951 (Version 1)
Quarter: 2020Q2

REPORT INFORMATION
  Report Type: Spontaneous
  Country: ES (occurrence: ES)
  Receive Date: 20200617
  Receipt Date: 20200617
  Transmission Date: 20200714
  Serious: Yes (Hospitalization)
  Sender: FDA-Public Use
  Company Number: ES-MYLANLABS-2020M1056119

PATIENT
  Age: 43 Year
  Sex: Female

DRUGS (6)
  1. HIGROTONA [Interacting]
     Active Substance: CHLORTHALIDONE
     Indication: HYPERTENSION
     Dosage: 50 MILLIGRAM, QD
     Route: 048
     Dates: start: 20200426, end: 20200512
  2. ENALAPRIL [Interacting]
     Active Substance: ENALAPRIL
     Indication: HYPERTENSION
     Dosage: 10 MILLIGRAM, 12 HOURS
     Route: 048
     Dates: start: 202001, end: 20200512
  3. NAPROXEN. [Interacting]
     Active Substance: NAPROXEN
     Indication: INTERVERTEBRAL DISC DISORDER
     Dosage: 500 MILLIGRAM, QD
     Route: 048
     Dates: start: 201910, end: 20200512
  4. FUROSEMIDE. [Suspect]
     Active Substance: FUROSEMIDE
     Indication: PRODUCT USED FOR UNKNOWN INDICATION
     Dosage: 40 MILLIGRAM, QD
     Route: 048
     Dates: start: 201909, end: 20200512
  5. PREGABALIN. [Interacting]
     Active Substance: PREGABALIN
     Indication: PRODUCT USED FOR UNKNOWN INDICATION
     Dosage: 150 MILLIGRAM, Q8H
     Route: 048
     Dates: start: 201901, end: 20200512
  6. MIRTAZAPINA [Concomitant]
     Active Substance: MIRTAZAPINE
     Indication: ANXIETY DISORDER
     Dosage: 30 MILLIGRAM, QD
     Route: 048
     Dates: start: 201912, end: 20200505

REACTIONS (2)
  - Drug interaction [Unknown]
  - Acute kidney injury [Recovering/Resolving]

NARRATIVE: CASE EVENT DATE: 20200512
